FAERS Safety Report 4766287-0 (Version None)
Quarter: 2005Q3

REPORT INFORMATION
  Report Type: 
  Country: None (occurrence: None)
  Receive Date: 20050912
  Receipt Date: 20050902
  Transmission Date: 20060218
  Serious: Yes (Other)
  Sender: FDA-Public Use
  Company Number: PHEH2005US09861

PATIENT
  Age: 80 Year
  Sex: Female
  Weight: 75 kg

DRUGS (6)
  1. SYNTHROID [Concomitant]
  2. AROMASIN [Concomitant]
  3. DARVOCET-N 100 [Concomitant]
  4. FOSAMAX [Concomitant]
  5. CALCIUM WITH VITAMIN D [Concomitant]
  6. ZOMETA [Suspect]
     Indication: BREAST CANCER METASTATIC
     Dosage: 4MG QMO
     Route: 042
     Dates: start: 20030213, end: 20050728

REACTIONS (1)
  - ASEPTIC NECROSIS BONE [None]
